FAERS Safety Report 10888851 (Version 1)
Quarter: 2015Q1

REPORT INFORMATION
  Report Type: Spontaneous
  Country: US (occurrence: US)
  Receive Date: 20150305
  Receipt Date: 20150305
  Transmission Date: 20150721
  Serious: No
  Sender: FDA-Public Use
  Company Number: US-BAYER-2015-032397

PATIENT
  Age: 63 Year
  Sex: Female

DRUGS (2)
  1. CLIMARA [Suspect]
     Active Substance: ESTRADIOL
     Indication: HOT FLUSH
     Dosage: UNK
     Route: 062
     Dates: start: 2000
  2. CLIMARA [Suspect]
     Active Substance: ESTRADIOL
     Indication: SLUGGISHNESS

REACTIONS (4)
  - Drug dose omission [None]
  - Sluggishness [None]
  - Feeling hot [None]
  - Product adhesion issue [None]

NARRATIVE: CASE EVENT DATE: 201502
